FAERS Safety Report 5490605-1 (Version None)
Quarter: 2007Q4

REPORT INFORMATION
  Report Type: 
  Country: None (occurrence: None)
  Receive Date: 20071019
  Receipt Date: 20071011
  Transmission Date: 20080405
  Serious: Yes (Death)
  Sender: FDA-Public Use
  Company Number: DE-BAYER-200716000GDS

PATIENT
  Age: 73 Year
  Sex: Female

DRUGS (11)
  1. ASPIRIN [Suspect]
     Indication: CARDIOVASCULAR EVENT PROPHYLAXIS
     Route: 048
     Dates: start: 20030520, end: 20071003
  2. TELMISARTAN [Suspect]
     Indication: HYPERTENSION
     Route: 048
     Dates: start: 20070810, end: 20071003
  3. CORTISONE ACETATE [Suspect]
     Indication: ADRENAL INSUFFICIENCY
     Route: 048
     Dates: start: 20070406, end: 20071003
  4. MOBIC [Suspect]
     Indication: SCIATICA
     Route: 048
     Dates: start: 20070912, end: 20071003
  5. FLURBIPROFEN [Suspect]
     Indication: BACK PAIN
     Route: 048
     Dates: start: 20070521, end: 20071003
  6. LEVOTHYROXINE SODIUM [Concomitant]
     Indication: HYPOTHYROIDISM
     Route: 048
     Dates: start: 20070330
  7. THEOPHYLILINE [Concomitant]
     Indication: DYSPNOEA
     Route: 048
     Dates: start: 20070423, end: 20071003
  8. LERCANIDIPINE [Concomitant]
     Indication: HYPERTENSION
     Route: 048
     Dates: start: 20060905, end: 20071003
  9. BISOPROLOL FUMARATE [Concomitant]
     Indication: ATRIAL FIBRILLATION
     Dosage: AS USED: 2.5 MG
     Route: 048
     Dates: start: 20030520, end: 20071003
  10. AMIODARONE HCL [Concomitant]
     Indication: ATRIAL FIBRILLATION
     Route: 048
     Dates: start: 20050315
  11. BUMETANIDE [Concomitant]
     Indication: CARDIAC FAILURE
     Route: 048
     Dates: start: 20070110, end: 20071003

REACTIONS (4)
  - ATRIAL FIBRILLATION [None]
  - ILEAL PERFORATION [None]
  - PERITONITIS [None]
  - SEPTIC SHOCK [None]
